FAERS Safety Report 8805167 (Version 1)
Quarter: 2012Q4

REPORT INFORMATION
  Report Type: 
  Country: None (occurrence: US)
  Receive Date: 20120924
  Receipt Date: 20120924
  Transmission Date: 20130627
  Serious: No
  Sender: FDA-Public Use
  Company Number: US-ALLERGAN-1207883US

PATIENT
  Sex: Female

DRUGS (1)
  1. LUMIGAN� 0.01% [Suspect]
     Indication: INTRAOCULAR PRESSURE RAISED
     Dosage: 1 Gtt, bid
     Route: 047
     Dates: start: 201204

REACTIONS (3)
  - Eustachian tube obstruction [Recovering/Resolving]
  - Hypoacusis [Recovering/Resolving]
  - Ear discomfort [Recovering/Resolving]
